FAERS Safety Report 19650361 (Version 1)
Quarter: 2021Q3

REPORT INFORMATION
  Report Type: Spontaneous
  Country: US (occurrence: US)
  Receive Date: 20210802
  Receipt Date: 20210802
  Transmission Date: 20211014
  Serious: No
  Sender: FDA-Public Use
  Company Number: None

PATIENT
  Sex: Female
  Weight: 56.25 kg

DRUGS (3)
  1. DEXTROAMPHET SACCHARAT, AMPHET ASPARTATE, DEXTROAMPHET SULFATE AND AMPHET SULFAT [Suspect]
     Active Substance: AMPHETAMINE ASPARTATE\AMPHETAMINE SULFATE\DEXTROAMPHETAMINE SACCHARATE\DEXTROAMPHETAMINE SULFATE
     Indication: ATTENTION DEFICIT HYPERACTIVITY DISORDER
     Dosage: ?          QUANTITY:1 TABLET(S);?
     Route: 048
     Dates: start: 20210714
  2. AMPHETAMINE/DEXTROAMPHETAMINE GENERIC [Concomitant]
  3. CONTRACEPTIVE?JUNEL FE [Concomitant]

REACTIONS (6)
  - Dizziness [None]
  - Therapeutic product effect decreased [None]
  - Headache [None]
  - Nausea [None]
  - Product substitution issue [None]
  - Insomnia [None]
